FAERS Safety Report 6643939-9 (Version None)
Quarter: 2010Q1

REPORT INFORMATION
  Report Type: 
  Country: None (occurrence: None)
  Receive Date: 20100304
  Receipt Date: 20091117
  Transmission Date: 20100710
  Serious: Yes (Hospitalization, Other)
  Sender: FDA-Public Use
  Company Number: 20091117CINRY1262

PATIENT
  Age: 12 Year
  Sex: Male

DRUGS (2)
  1. CINRYZE [Suspect]
     Indication: HEREDITARY ANGIOEDEMA
     Dosage: (1000 UNIT, 1 IN 1 WK), INTRAVENOUS
     Route: 042
     Dates: start: 20090903
  2. CINRYZE [Suspect]
     Indication: PROPHYLAXIS
     Dosage: (1000 UNIT, 1 IN 1 WK), INTRAVENOUS
     Route: 042
     Dates: start: 20090903

REACTIONS (4)
  - ANGIOEDEMA [None]
  - ANXIETY [None]
  - HEREDITARY ANGIOEDEMA [None]
  - INAPPROPRIATE SCHEDULE OF DRUG ADMINISTRATION [None]
